FAERS Safety Report 6202469-9 (Version None)
Quarter: 2009Q2

REPORT INFORMATION
  Report Type: 
  Country: None (occurrence: None)
  Receive Date: 20090521
  Receipt Date: 20090521
  Transmission Date: 20091009
  Serious: Yes (Hospitalization)
  Sender: FDA-Public Use
  Company Number: None

PATIENT
  Age: 69 Year
  Sex: Male

DRUGS (1)
  1. CLOZAPINE [Suspect]
     Dosage: 700 MG EVERY DAY PO
     Route: 048
     Dates: start: 19970917

REACTIONS (2)
  - ANAEMIA [None]
  - GASTROINTESTINAL HAEMORRHAGE [None]
